FAERS Safety Report 11826131 (Version 1)
Quarter: 2015Q4

REPORT INFORMATION
  Report Type: Spontaneous
  Country: GB (occurrence: GB)
  Receive Date: 20151211
  Receipt Date: 20151211
  Transmission Date: 20160305
  Serious: Yes (Other)
  Sender: FDA-Public Use
  Company Number: GB-AUROBINDO-AUR-APL-2013-09154

PATIENT
  Age: 29 Year
  Sex: Male
  Weight: 72 kg

DRUGS (1)
  1. FINASTERIDE 5 MG FILM COATED TABLETS [Suspect]
     Active Substance: FINASTERIDE
     Indication: ALOPECIA
     Dosage: .5 MG,UNK,
     Route: 048

REACTIONS (4)
  - Loss of libido [Not Recovered/Not Resolved]
  - Genital hypoaesthesia [Not Recovered/Not Resolved]
  - Depression [Recovering/Resolving]
  - Genital paraesthesia [Not Recovered/Not Resolved]

NARRATIVE: CASE EVENT DATE: 20120201
